FAERS Safety Report 4424682-3 (Version None)
Quarter: 2004Q3

REPORT INFORMATION
  Report Type: 
  Country: None (occurrence: None)
  Receive Date: 20040809
  Receipt Date: 20040624
  Transmission Date: 20050211
  Serious: Yes (Hospitalization)
  Sender: FDA-Public Use
  Company Number: M2004.1021

PATIENT
  Age: 52 Year
  Sex: Male

DRUGS (6)
  1. SIMVASTATIN [Suspect]
     Indication: HYPERLIPIDAEMIA
  2. CYCLOSPORINE [Suspect]
     Indication: IMMUNOSUPPRESSANT DRUG THERAPY
  3. VERAPAMIL [Suspect]
     Indication: ATRIAL FIBRILLATION
  4. DIGOXIN [Suspect]
     Indication: ATRIAL FIBRILLATION
  5. AZATHIOPRINE [Concomitant]
  6. PREDNISONE [Concomitant]

REACTIONS (4)
  - ATRIAL FIBRILLATION [None]
  - DRUG INTERACTION [None]
  - RENAL FAILURE ACUTE [None]
  - RHABDOMYOLYSIS [None]
